FAERS Safety Report 16797722 (Version 3)
Quarter: 2019Q4

REPORT INFORMATION
  Report Type: Report from Study
  Country: None (occurrence: US)
  Receive Date: 20190912
  Receipt Date: 20191227
  Transmission Date: 20200122
  Serious: Yes (Hospitalization)
  Sender: FDA-Public Use
  Company Number: US-ABBVIE-19K-163-2916538-00

PATIENT
  Sex: Male

DRUGS (5)
  1. HUMIRA [Suspect]
     Active Substance: ADALIMUMAB
     Indication: COLITIS ULCERATIVE
     Dosage: DAY 29
     Route: 058
     Dates: start: 20190805, end: 20190805
  2. AMOXICILLIN. [Suspect]
     Active Substance: AMOXICILLIN
     Indication: NASOPHARYNGITIS
     Route: 065
  3. HUMIRA [Suspect]
     Active Substance: ADALIMUMAB
     Indication: PRODUCT USED FOR UNKNOWN INDICATION
     Dosage: DAY 1
     Route: 058
     Dates: start: 20190708, end: 20190708
  4. HUMIRA [Suspect]
     Active Substance: ADALIMUMAB
     Dosage: DAY 15
     Route: 058
     Dates: start: 20190722, end: 20190722
  5. HUMIRA [Suspect]
     Active Substance: ADALIMUMAB
     Dosage: DAY 29
     Route: 058
     Dates: start: 20190902

REACTIONS (21)
  - Fear [Not Recovered/Not Resolved]
  - Abdominal pain upper [Recovering/Resolving]
  - Mobility decreased [Unknown]
  - Nausea [Not Recovered/Not Resolved]
  - Nasopharyngitis [Recovered/Resolved]
  - Abnormal faeces [Unknown]
  - Depressed mood [Not Recovered/Not Resolved]
  - Faeces hard [Not Recovered/Not Resolved]
  - Vomiting [Not Recovered/Not Resolved]
  - Constipation [Not Recovered/Not Resolved]
  - Decreased appetite [Not Recovered/Not Resolved]
  - Malaise [Not Recovered/Not Resolved]
  - Haematochezia [Unknown]
  - Loss of personal independence in daily activities [Not Recovered/Not Resolved]
  - Anxiety [Not Recovered/Not Resolved]
  - Diarrhoea [Not Recovered/Not Resolved]
  - Rectal haemorrhage [Recovering/Resolving]
  - Rash [Not Recovered/Not Resolved]
  - Insomnia [Not Recovered/Not Resolved]
  - Nasopharyngitis [Recovered/Resolved]
  - Weight decreased [Unknown]

NARRATIVE: CASE EVENT DATE: 2019
